FAERS Safety Report 25753111 (Version 2)
Quarter: 2025Q3

REPORT INFORMATION
  Report Type: Report from Study
  Country: CO (occurrence: CO)
  Receive Date: 20250902
  Receipt Date: 20250911
  Transmission Date: 20251020
  Serious: Yes (Hospitalization)
  Sender: BIOGEN
  Company Number: CO-BIOGEN-2025BI01315834

PATIENT
  Sex: Female
  Weight: 73.5 kg

DRUGS (9)
  1. TYSABRI [Suspect]
     Active Substance: NATALIZUMAB
     Indication: Multiple sclerosis
     Route: 050
  2. TRAZODONE [Concomitant]
     Active Substance: TRAZODONE HYDROCHLORIDE
     Indication: Initial insomnia
     Route: 050
     Dates: start: 2018
  3. TRAZODONE [Concomitant]
     Active Substance: TRAZODONE HYDROCHLORIDE
     Route: 050
     Dates: start: 2009
  4. LEVOTHYROXINE [Concomitant]
     Active Substance: LEVOTHYROXINE
     Indication: Hypothyroidism
     Route: 050
     Dates: start: 202502
  5. LEVOTHYROXINE [Concomitant]
     Active Substance: LEVOTHYROXINE
     Dosage: FROM MONDAY TO THURSDAY (100)
     Route: 050
  6. LEVOTHYROXINE [Concomitant]
     Active Substance: LEVOTHYROXINE
     Dosage: FROM FRIDAY TO SUNDAY (50)
     Route: 050
     Dates: start: 2009
  7. PREGABALIN [Concomitant]
     Active Substance: PREGABALIN
     Indication: Product used for unknown indication
     Dosage: AT NIGHT
     Route: 050
     Dates: start: 2012
  8. PREGABALIN [Concomitant]
     Active Substance: PREGABALIN
     Dosage: 150 AT NIGHT
     Route: 050
     Dates: start: 2009
  9. PREGABALIN [Concomitant]
     Active Substance: PREGABALIN
     Dosage: 75 IN THE MORNING
     Route: 050
     Dates: start: 2009

REACTIONS (8)
  - Chest pain [Recovered/Resolved]
  - Ischaemia [Not Recovered/Not Resolved]
  - Mood swings [Not Recovered/Not Resolved]
  - Paraesthesia [Not Recovered/Not Resolved]
  - Fibromyalgia [Not Recovered/Not Resolved]
  - Blood cholesterol abnormal [Not Recovered/Not Resolved]
  - Cardiac disorder [Not Recovered/Not Resolved]
  - Anger [Not Recovered/Not Resolved]

NARRATIVE: CASE EVENT DATE: 20241201
